FAERS Safety Report 5460869-9 (Version None)
Quarter: 2007Q3

REPORT INFORMATION
  Report Type: 
  Country: None (occurrence: None)
  Receive Date: 20070918
  Receipt Date: 20070831
  Transmission Date: 20080115
  Serious: Yes (Hospitalization)
  Sender: FDA-Public Use
  Company Number: 6036355

PATIENT
  Age: 76 Year
  Sex: Male

DRUGS (9)
  1. WARFARIN SODIUM [Suspect]
     Indication: DRUG USE FOR UNKNOWN INDICATION
  2. SIGMART  (NICORANDIL) [Suspect]
     Indication: ANGINA PECTORIS
     Dosage: 15 MG (5 MG, 3 IN 1 D) ORAL
     Route: 048
     Dates: end: 20070611
  3. ASPIRIN [Suspect]
     Indication: DRUG USE FOR UNKNOWN INDICATION
  4. ZANTAC 150 [Suspect]
     Indication: DRUG USE FOR UNKNOWN INDICATION
  5. LIPITOR [Suspect]
     Indication: DRUG USE FOR UNKNOWN INDICATION
  6. TENORMIN [Suspect]
     Indication: DRUG USE FOR UNKNOWN INDICATION
  7. PLETAL [Suspect]
     Indication: DRUG USE FOR UNKNOWN INDICATION
  8. BEPRICOR  (BEPRIDIL) [Suspect]
     Indication: DRUG USE FOR UNKNOWN INDICATION
  9. LENDORMIN  (BROTIZOLAM) [Suspect]
     Indication: DRUG USE FOR UNKNOWN INDICATION

REACTIONS (8)
  - AGRANULOCYTOSIS [None]
  - CARDIAC FAILURE [None]
  - MYOCARDIAL INFARCTION [None]
  - NEUTROPENIA [None]
  - PLEURAL EFFUSION [None]
  - PO2 DECREASED [None]
  - PULMONARY OEDEMA [None]
  - SUBDURAL HAEMATOMA [None]
